FAERS Safety Report 9287958 (Version 1)
Quarter: 2013Q2

REPORT INFORMATION
  Report Type: Spontaneous
  Country: US (occurrence: US)
  Receive Date: 20130514
  Receipt Date: 20130514
  Transmission Date: 20140414
  Serious: No
  Sender: FDA-Public Use
  Company Number: US-ASTRAZENECA-2006UW03916

PATIENT
  Age: 43 Year
  Sex: Female
  Weight: 65.8 kg

DRUGS (3)
  1. SEROQUEL [Suspect]
     Route: 048
  2. EMERGEN C [Concomitant]
     Indication: ELECTROLYTE IMBALANCE
     Dosage: 1 PACKET DAILY
     Route: 048
     Dates: start: 201301, end: 201302
  3. ABILIFY [Concomitant]
     Indication: SCHIZOPHRENIA

REACTIONS (3)
  - Pancreatic disorder [Unknown]
  - Drug hypersensitivity [Unknown]
  - Vomiting [Recovered/Resolved]
